FAERS Safety Report 25137268 (Version 2)
Quarter: 2025Q2

REPORT INFORMATION
  Report Type: Report from Study
  Country: US (occurrence: US)
  Receive Date: 20250329
  Receipt Date: 20250415
  Transmission Date: 20250717
  Serious: Yes (Death, Hospitalization)
  Sender: ABBVIE
  Company Number: US-ABBVIE-6202701

PATIENT
  Age: 89 Year
  Sex: Male
  Weight: 61.234 kg

DRUGS (1)
  1. HUMIRA [Suspect]
     Active Substance: ADALIMUMAB
     Indication: Rheumatoid arthritis
     Dosage: CITRATE FREE. FORM STRENGTH: 40 MILLIGRAM
     Route: 058
     Dates: start: 200905, end: 202501

REACTIONS (3)
  - Chronic obstructive pulmonary disease [Fatal]
  - Pneumonia [Fatal]
  - Respiratory syncytial virus infection [Fatal]

NARRATIVE: CASE EVENT DATE: 20250119
